FAERS Safety Report 7536042-7 (Version None)
Quarter: 2011Q2

REPORT INFORMATION
  Report Type: 
  Country: None (occurrence: None)
  Receive Date: 20110609
  Receipt Date: 20110601
  Transmission Date: 20111010
  Serious: Yes (Hospitalization)
  Sender: FDA-Public Use
  Company Number: JP-ASTELLAS-2011JP002642

PATIENT
  Sex: Female
  Weight: 40.6 kg

DRUGS (16)
  1. ZESULAN [Concomitant]
     Indication: PRURITUS
     Dosage: 6 MG, UNKNOWN/D
     Route: 048
     Dates: start: 20101129
  2. DORNER [Concomitant]
     Indication: PULMONARY HYPERTENSION
  3. MICARDIS [Concomitant]
     Indication: HYPERTENSION
     Dosage: 40 MG, UNKNOWN/D
     Route: 048
  4. PLETAL [Concomitant]
     Indication: NEUROPATHY PERIPHERAL
     Dosage: 300 MG, UNKNOWN/D
     Route: 048
  5. ALLEGRA [Concomitant]
     Indication: DERMATITIS
     Dosage: 120 MG, UNKNOWN/D
     Route: 048
     Dates: start: 20101018
  6. LUPRAC [Concomitant]
     Indication: OEDEMA
     Dosage: 8 MG, UNKNOWN/D
     Route: 048
  7. ALDACTONE [Concomitant]
     Indication: HYPERTENSION
     Dosage: 25 MG, UNKNOWN/D
     Route: 048
  8. FERROUS CITRATE [Concomitant]
     Indication: IRON DEFICIENCY ANAEMIA
     Dosage: 100 MG, UNKNOWN/D
     Route: 048
     Dates: start: 20101129
  9. PROGRAF [Suspect]
     Indication: ARTHRITIS
     Dosage: 1.5 MG, UNKNOWN/D
     Route: 048
     Dates: end: 20101128
  10. BERAPROST SODIUM [Concomitant]
     Indication: SCLERODERMA
     Dosage: 120 UG, BID
     Route: 048
     Dates: start: 20101018
  11. BERAPROST SODIUM [Concomitant]
     Indication: PULMONARY HYPERTENSION
  12. EPADEL-S [Concomitant]
     Indication: ARTERIOSCLEROSIS OBLITERANS
     Dosage: 1800 MG, UNKNOWN/D
     Route: 048
  13. DORNER [Concomitant]
     Indication: SCLERODERMA
     Dosage: 120 UG, UNKNOWN/D
     Route: 048
     Dates: end: 20101017
  14. LOCOID [Concomitant]
     Indication: DERMATITIS
     Dosage: UNK
     Route: 061
  15. TRACLEER [Concomitant]
     Indication: SCLERODERMA
     Dosage: 125 MG, UNKNOWN/D
     Route: 048
     Dates: start: 20101210
  16. TRACLEER [Concomitant]
     Indication: PULMONARY HYPERTENSION

REACTIONS (2)
  - OFF LABEL USE [None]
  - PNEUMONIA [None]
